FAERS Safety Report 8219791-7 (Version None)
Quarter: 2012Q1

REPORT INFORMATION
  Report Type: 
  Country: None (occurrence: None)
  Receive Date: 20120319
  Receipt Date: 20120305
  Transmission Date: 20120608
  Serious: Yes (Hospitalization)
  Sender: FDA-Public Use
  Company Number: IL-BRISTOL-MYERS SQUIBB COMPANY-16092488

PATIENT
  Age: 81 Year
  Sex: Male

DRUGS (15)
  1. BLINDED: SAXAGLIPTIN [Suspect]
     Indication: TYPE 2 DIABETES MELLITUS
     Dosage: STOP DATE:20SEP2011. RESTART : 20DEC11
     Dates: start: 20101222
  2. GLIPIZIDE [Suspect]
     Indication: DIABETES MELLITUS
     Dates: start: 20110925
  3. BLINDED: PLACEBO [Suspect]
     Indication: TYPE 2 DIABETES MELLITUS
     Dosage: RESTART : 20DEC11
     Dates: start: 20101222
  4. COENZYME Q10 [Suspect]
     Dates: start: 20110821, end: 20110921
  5. ENALAPRIL MALEATE [Concomitant]
  6. PROSCAR [Suspect]
  7. ASPIRIN [Concomitant]
     Dosage: 1DF={100MG ON 22DEC10,22MAR11,05SEP11.
  8. AMLODIPINE [Concomitant]
     Dates: start: 20091103
  9. REPAGLINIDE [Concomitant]
     Dates: start: 20110616, end: 20110921
  10. SIMVASTATIN [Concomitant]
     Dates: start: 20101227, end: 20110921
  11. FUROSEMIDE [Concomitant]
     Dates: start: 20110223
  12. REPAGLINIDE [Suspect]
     Indication: TYPE 2 DIABETES MELLITUS
     Dosage: DRUG INTERRUPTED ON 22SEP2011 RESTART : 20DEC11
     Dates: start: 20110616
  13. GLUCOMIN [Concomitant]
     Dates: start: 20090315
  14. MERCAPTIZOL [Suspect]
     Dates: start: 20110825
  15. MICROPIRIN [Concomitant]
     Dates: start: 20081211

REACTIONS (4)
  - JAUNDICE [None]
  - TRANSFUSION REACTION [None]
  - HEPATIC FUNCTION ABNORMAL [None]
  - ANAEMIA [None]
